FAERS Safety Report 10308144 (Version 1)
Quarter: 2014Q3

REPORT INFORMATION
  Report Type: Spontaneous
  Country: US (occurrence: US)
  Receive Date: 20140716
  Receipt Date: 20140716
  Transmission Date: 20150326
  Serious: No
  Sender: FDA-Public Use
  Company Number: US-009507513-1406USA003575

PATIENT
  Sex: Male

DRUGS (1)
  1. CLARITIN [Suspect]
     Active Substance: LORATADINE
     Indication: NASAL CONGESTION
     Dosage: UNK, UNKNOWN
     Route: 048

REACTIONS (1)
  - Therapeutic product ineffective for unapproved indication [Unknown]
